FAERS Safety Report 8483973-X (Version None)
Quarter: 2012Q3

REPORT INFORMATION
  Report Type: 
  Country: None (occurrence: None)
  Receive Date: 20120703
  Receipt Date: 20120628
  Transmission Date: 20120928
  Serious: No
  Sender: FDA-Public Use
  Company Number: US-PFIZER INC-2012156131

PATIENT
  Sex: Female

DRUGS (2)
  1. TOVIAZ [Suspect]
     Dosage: 8 MG, UNK
  2. TOVIAZ [Suspect]
     Dosage: 4 MG, UNK

REACTIONS (4)
  - DRY MOUTH [None]
  - DYSPHAGIA [None]
  - DYSURIA [None]
  - ORAL DISCOMFORT [None]
